FAERS Safety Report 15379086 (Version 3)
Quarter: 2018Q4

REPORT INFORMATION
  Report Type: Spontaneous
  Country: US (occurrence: US)
  Receive Date: 20180913
  Receipt Date: 20181204
  Transmission Date: 20190204
  Serious: Yes (Other)
  Sender: FDA-Public Use
  Company Number: US-LPDUSPRD-20180795

PATIENT
  Age: 71 Year
  Sex: Male

DRUGS (7)
  1. INJECTAFER [Suspect]
     Active Substance: FERRIC CARBOXYMALTOSE
     Dosage: 750 MG ONE TIME
     Route: 040
     Dates: start: 20180502, end: 20180502
  2. ????? [Concomitant]
     Dosage: UNKNOWN
     Route: 065
  3. HYDROCODONE PLUS TYLENOL [Concomitant]
     Dosage: UNKNOWN
     Route: 065
  4. CARAFATE [Concomitant]
     Active Substance: SUCRALFATE
     Dosage: UNKNOWN
     Route: 065
  5. BETNESOL [Concomitant]
     Dosage: UNKNOWN
     Route: 065
  6. HYDROCHLOROTHIAZIDE AND LISINOPRIL [Concomitant]
     Active Substance: HYDROCHLOROTHIAZIDE\LISINOPRIL
     Dosage: UNKNOWN
     Route: 065
  7. LYRICA [Concomitant]
     Active Substance: PREGABALIN
     Dosage: UNKNOWN
     Route: 065

REACTIONS (3)
  - Injection site pain [Unknown]
  - Skin discolouration [Not Recovered/Not Resolved]
  - Injection site discolouration [Not Recovered/Not Resolved]

NARRATIVE: CASE EVENT DATE: 20180502
